FAERS Safety Report 23607769 (Version 1)
Quarter: 2024Q1

REPORT INFORMATION
  Report Type: Spontaneous
  Country: US (occurrence: US)
  Receive Date: 20240307
  Receipt Date: 20240307
  Transmission Date: 20240410
  Serious: No
  Sender: FDA-Public Use
  Company Number: US-GALDERMA-US2024002153

PATIENT

DRUGS (1)
  1. DIFFERIN GEL [Suspect]
     Active Substance: ADAPALENE
     Indication: Chloasma
     Dosage: 1 DOSAGE FORM, USED THREE TIMES
     Route: 061

REACTIONS (3)
  - Perioral dermatitis [Unknown]
  - Skin exfoliation [Unknown]
  - Product use in unapproved indication [Recovered/Resolved]
